FAERS Safety Report 25481508 (Version 1)
Quarter: 2025Q2

REPORT INFORMATION
  Report Type: Spontaneous
  Country: SE (occurrence: SE)
  Receive Date: 20250626
  Receipt Date: 20250626
  Transmission Date: 20250717
  Serious: Yes (Disabling)
  Sender: AUROBINDO
  Company Number: SE-SEMPA-2025-004317

PATIENT
  Age: 73 Year
  Sex: Female

DRUGS (2)
  1. AMLODIPINE [Suspect]
     Active Substance: AMLODIPINE BESYLATE
     Indication: Hypertension
     Dosage: 5 MILLIGRAM, ONCE A DAY (1 TABLET DAILY)
     Route: 065
     Dates: start: 20250214, end: 20250523
  2. DIFLUCAN [Suspect]
     Active Substance: FLUCONAZOLE
     Indication: Candida sepsis
     Route: 065
     Dates: start: 2024

REACTIONS (1)
  - Alopecia [Not Recovered/Not Resolved]

NARRATIVE: CASE EVENT DATE: 20250519
